FAERS Safety Report 6957488-1 (Version None)
Quarter: 2010Q3

REPORT INFORMATION
  Report Type: 
  Country: None (occurrence: None)
  Receive Date: 20100831
  Receipt Date: 20100825
  Transmission Date: 20110219
  Serious: Yes (Hospitalization, Other)
  Sender: FDA-Public Use
  Company Number: US-TEVA-246149USA

PATIENT
  Sex: Female

DRUGS (1)
  1. PENICILLIN G POTASSIUM [Suspect]

REACTIONS (2)
  - ERYTHEMA [None]
  - LOSS OF CONSCIOUSNESS [None]
